FAERS Safety Report 8584007 (Version 3)
Quarter: 2012Q4

REPORT INFORMATION
  Report Type: Report from Study
  Country: DE (occurrence: DE)
  Receive Date: 20120529
  Receipt Date: 20120830
  Transmission Date: 20130627
  Serious: Yes (Life-Threatening, Hospitalization, Other)
  Sender: FDA-Public Use
  Company Number: DE-ACTELION-A-US2012-66185

PATIENT
  Age: 34 Year
  Sex: Female

DRUGS (10)
  1. VENTAVIS [Suspect]
     Indication: PULMONARY ARTERIAL HYPERTENSION
     Dosage: daily dose 30 ug
     Route: 055
     Dates: start: 20091026
  2. MARCUMAR [Concomitant]
  3. XARELTO [Concomitant]
  4. REMODULIN [Concomitant]
  5. SYMBICORT [Concomitant]
  6. ESOMEPRAZOL [Concomitant]
  7. VOLIBRIS [Concomitant]
  8. ALDACTONE [Concomitant]
  9. TORASEMID [Concomitant]
  10. REVATIO [Concomitant]

REACTIONS (8)
  - Pulmonary embolism [Not Recovered/Not Resolved]
  - Transfusion [Unknown]
  - Right ventricular failure [Unknown]
  - Respiratory failure [Unknown]
  - Shock [Unknown]
  - Pneumonia [Unknown]
  - Cough [Unknown]
  - Back pain [Unknown]
